FAERS Safety Report 8499767-5 (Version None)
Quarter: 2012Q3

REPORT INFORMATION
  Report Type: 
  Country: None (occurrence: None)
  Receive Date: 20120703
  Receipt Date: 20120703
  Transmission Date: 20120928
  Serious: No
  Sender: FDA-Public Use
  Company Number: None

PATIENT
  Sex: Female
  Weight: 68.0396 kg

DRUGS (2)
  1. MUPIROCIN [Suspect]
     Indication: HAEMORRHAGE
     Dosage: SMALL DAB 2 XDAY 5 DAYS NASAL
     Route: 045
     Dates: start: 20120530, end: 20120630
  2. MUPIROCIN [Suspect]
     Indication: NASAL DISCOMFORT
     Dosage: SMALL DAB 2 XDAY 5 DAYS NASAL
     Route: 045
     Dates: start: 20120530, end: 20120630

REACTIONS (2)
  - DRUG DISPENSING ERROR [None]
  - DRUG ADMINISTRATION ERROR [None]
